FAERS Safety Report 7306601-5 (Version None)
Quarter: 2011Q1

REPORT INFORMATION
  Report Type: 
  Country: None (occurrence: None)
  Receive Date: 20110222
  Receipt Date: 20110210
  Transmission Date: 20110831
  Serious: Yes (Hospitalization, Other)
  Sender: FDA-Public Use
  Company Number: US-ROCHE-735731

PATIENT
  Sex: Male
  Weight: 82.6 kg

DRUGS (4)
  1. AMNESTEEM [Suspect]
     Indication: ACNE
     Route: 065
     Dates: start: 20030505, end: 20030626
  2. ACCUTANE [Suspect]
     Indication: ACNE
     Route: 065
     Dates: start: 19840101
  3. ACCUTANE [Suspect]
     Route: 065
     Dates: start: 19910701, end: 19920101
  4. ACCUTANE [Suspect]
     Route: 065
     Dates: start: 20021107, end: 20030327

REACTIONS (7)
  - LIP DRY [None]
  - COLITIS ULCERATIVE [None]
  - BLOOD TRIGLYCERIDES INCREASED [None]
  - INFLAMMATORY BOWEL DISEASE [None]
  - PERIRECTAL ABSCESS [None]
  - CROHN'S DISEASE [None]
  - GASTROINTESTINAL INJURY [None]
